FAERS Safety Report 15989734 (Version 1)
Quarter: 2019Q1

REPORT INFORMATION
  Report Type: Report from Study
  Country: GB (occurrence: GB)
  Receive Date: 20190221
  Receipt Date: 20190221
  Transmission Date: 20190418
  Serious: Yes (Other)
  Sender: FDA-Public Use
  Company Number: PHHY2019GB038504

PATIENT
  Sex: Female

DRUGS (1)
  1. COSENTYX [Suspect]
     Active Substance: SECUKINUMAB
     Indication: PSORIATIC ARTHROPATHY
     Dosage: 300 MG, QMO
     Route: 058
     Dates: start: 20180625

REACTIONS (15)
  - Productive cough [Unknown]
  - Pruritus [Unknown]
  - Contusion [Unknown]
  - Rhinorrhoea [Unknown]
  - Cough [Unknown]
  - Oral mucosal blistering [Unknown]
  - Lower respiratory tract infection [Unknown]
  - Psoriatic arthropathy [Unknown]
  - Oral candidiasis [Unknown]
  - Lip swelling [Unknown]
  - Macule [Unknown]
  - Depressed mood [Unknown]
  - Drug ineffective [Unknown]
  - Blood blister [Unknown]
  - Nasopharyngitis [Unknown]
